FAERS Safety Report 18559873 (Version 2)
Quarter: 2021Q4

REPORT INFORMATION
  Report Type: Spontaneous
  Country: US (occurrence: US)
  Receive Date: 20201130
  Receipt Date: 20211014
  Transmission Date: 20220303
  Serious: Yes (Other)
  Sender: FDA-Public Use
  Company Number: US-PFIZER INC-2019010161

PATIENT
  Age: 68 Year
  Sex: Female

DRUGS (2)
  1. RAPAMUNE [Suspect]
     Active Substance: SIROLIMUS
     Indication: Liver transplant
     Dosage: 3 MG, 1X/DAY (ONCE DAILY IN THE MORNING)
     Route: 048
  2. RAPAMUNE [Suspect]
     Active Substance: SIROLIMUS
     Dosage: 2 MG, 1X/DAY (2 TABLET BY MOUTH DAILY IN THE MORNING )
     Route: 048

REACTIONS (4)
  - Renal impairment [Unknown]
  - Renal failure [Unknown]
  - Malaise [Unknown]
  - Off label use [Unknown]
